FAERS Safety Report 6010176-0 (Version None)
Quarter: 2008Q4

REPORT INFORMATION
  Report Type: 
  Country: None (occurrence: None)
  Receive Date: 20081218
  Receipt Date: 20081212
  Transmission Date: 20090506
  Serious: Yes (Death, Hospitalization)
  Sender: FDA-Public Use
  Company Number: FR-BRISTOL-MYERS SQUIBB COMPANY-14443964

PATIENT
  Age: 80 Year
  Sex: Female

DRUGS (4)
  1. GLUCOPHAGE [Suspect]
     Indication: TYPE 2 DIABETES MELLITUS
     Route: 048
     Dates: end: 20080130
  2. HYZAAR [Suspect]
     Indication: HYPERTENSION
     Route: 048
     Dates: end: 20080130
  3. DAONIL [Concomitant]
     Dates: end: 20080130
  4. KARDEGIC [Concomitant]
     Route: 048
     Dates: end: 20080130

REACTIONS (7)
  - ANURIA [None]
  - BRADYCARDIA [None]
  - DIARRHOEA [None]
  - METABOLIC ACIDOSIS [None]
  - RENAL FAILURE ACUTE [None]
  - SOMNOLENCE [None]
  - VOMITING [None]
